FAERS Safety Report 9373850 (Version 7)
Quarter: 2014Q2

REPORT INFORMATION
  Report Type: Report from Study
  Country: GB (occurrence: GB)
  Receive Date: 20130628
  Receipt Date: 20140419
  Transmission Date: 20141212
  Serious: Yes (Death, Hospitalization)
  Sender: FDA-Public Use
  Company Number: GB-ROCHE-1242619

PATIENT
  Age: 83 Year
  Sex: Female

DRUGS (7)
  1. RANIBIZUMAB [Suspect]
     Indication: AGE-RELATED MACULAR DEGENERATION
     Route: 050
     Dates: start: 20090702
  2. RANIBIZUMAB [Suspect]
     Route: 050
     Dates: start: 20100426
  3. RANIBIZUMAB [Suspect]
     Route: 065
     Dates: start: 20120126
  4. RANIBIZUMAB [Suspect]
     Route: 050
     Dates: start: 20130509, end: 20130509
  5. BENDROFLUMETHIAZIDE [Concomitant]
     Indication: HYPERTENSION
  6. PRAVASTATIN [Concomitant]
     Indication: HYPERTENSION
  7. FELODIPINE [Concomitant]
     Indication: HYPERTENSION

REACTIONS (2)
  - Cardiac valve disease [Fatal]
  - Death [Fatal]
